FAERS Safety Report 5483712-0 (Version None)
Quarter: 2007Q4

REPORT INFORMATION
  Report Type: 
  Country: None (occurrence: None)
  Receive Date: 20071010
  Receipt Date: 20070928
  Transmission Date: 20080405
  Serious: Yes (Hospitalization)
  Sender: FDA-Public Use
  Company Number: 2007BI021003

PATIENT
  Sex: Male

DRUGS (1)
  1. AVONEX [Suspect]
     Indication: MULTIPLE SCLEROSIS
     Dosage: 30 UG;QW;IM
     Route: 030
     Dates: start: 20050624, end: 20070123

REACTIONS (5)
  - DRUG EXPOSURE DURING PREGNANCY [None]
  - HEART RATE IRREGULAR [None]
  - NEONATAL ASPIRATION [None]
  - NEONATAL DISORDER [None]
  - TRANSMISSION OF DRUG VIA SEMEN [None]
